FAERS Safety Report 19093701 (Version 1)
Quarter: 2021Q2

REPORT INFORMATION
  Report Type: Spontaneous
  Country: US (occurrence: US)
  Receive Date: 20210405
  Receipt Date: 20210405
  Transmission Date: 20210717
  Serious: Yes (Life-Threatening, Other)
  Sender: FDA-Public Use
  Company Number: US-ASTRAZENECA-2021A256177

PATIENT
  Age: 70 Year
  Sex: Female

DRUGS (3)
  1. BABY ASPIRIN [Concomitant]
     Active Substance: ASPIRIN
  2. OMEPRAZOLE. [Suspect]
     Active Substance: OMEPRAZOLE
     Route: 048
  3. ANECTINE [Suspect]
     Active Substance: SUCCINYLCHOLINE CHLORIDE
     Route: 065

REACTIONS (4)
  - Coma [Unknown]
  - Hypersensitivity [Unknown]
  - Food allergy [Unknown]
  - Pseudocholinesterase deficiency [Unknown]
